FAERS Safety Report 23441065 (Version 1)
Quarter: 2024Q1

REPORT INFORMATION
  Report Type: Spontaneous
  Country: US (occurrence: US)
  Receive Date: 20240125
  Receipt Date: 20240125
  Transmission Date: 20240410
  Serious: Yes (Hospitalization, Other)
  Sender: FDA-Public Use
  Company Number: US-SUN PHARMACEUTICAL INDUSTRIES LTD-2024R1-428219

PATIENT
  Age: 42 Year
  Sex: Male

DRUGS (3)
  1. CABERGOLINE [Suspect]
     Active Substance: CABERGOLINE
     Indication: Pituitary tumour benign
     Dosage: 0.5 MILLIGRAM, WEEKLY
     Route: 065
  2. PREDNISONE [Suspect]
     Active Substance: PREDNISONE
     Indication: Pituitary tumour benign
     Dosage: 40 MILLIGRAM, DAILY
     Route: 065
  3. METHIMAZOLE [Suspect]
     Active Substance: METHIMAZOLE
     Indication: Pituitary tumour benign
     Dosage: UNK
     Route: 065

REACTIONS (3)
  - Therapy non-responder [Unknown]
  - Diabetes insipidus [Unknown]
  - Meningitis [Unknown]
